FAERS Safety Report 9529141 (Version 2)
Quarter: 2013Q3

REPORT INFORMATION
  Report Type: Spontaneous
  Country: DK (occurrence: JP)
  Receive Date: 20130917
  Receipt Date: 20130917
  Transmission Date: 20140515
  Serious: Yes (Other)
  Sender: FDA-Public Use
  Company Number: JP-FRI-1000024486

PATIENT
  Age: 32 Year
  Sex: Male

DRUGS (9)
  1. LEXAPRO [Suspect]
     Indication: DEPRESSION
     Dosage: 10 MG
     Dates: start: 20110824, end: 20110926
  2. AMOXAN [Suspect]
     Indication: DEPRESSION
     Dosage: 75 MG
     Route: 048
     Dates: start: 20110124, end: 20110926
  3. LEXOTAN [Concomitant]
     Route: 048
  4. FLUNITRAZEPAM [Concomitant]
     Route: 048
  5. IRRIBOW [Concomitant]
     Route: 048
  6. BENZALIN [Concomitant]
     Route: 048
  7. RAVONA [Concomitant]
     Route: 048
  8. CYMBALTA [Concomitant]
     Indication: DEPRESSION
     Dosage: 60 MG
     Route: 048
     Dates: start: 20110221, end: 20110926
  9. SENIRAN [Concomitant]
     Indication: DEPRESSION
     Dosage: 6 MG
     Dates: start: 20110405, end: 20110926

REACTIONS (1)
  - Convulsion [Recovered/Resolved]
